FAERS Safety Report 7629213-2 (Version None)
Quarter: 2011Q3

REPORT INFORMATION
  Report Type: 
  Country: None (occurrence: None)
  Receive Date: 20110722
  Receipt Date: 20110712
  Transmission Date: 20111222
  Serious: Yes (Other)
  Sender: FDA-Public Use
  Company Number: PHHY2011US45997

PATIENT
  Age: 77 Year
  Sex: Female

DRUGS (1)
  1. GENTEAL [Suspect]
     Dosage: UNK UKN, BID

REACTIONS (3)
  - EYE IRRITATION [None]
  - DRUG INEFFECTIVE [None]
  - DRY EYE [None]
